FAERS Safety Report 9269248 (Version 1)
Quarter: 2013Q2

REPORT INFORMATION
  Report Type: Spontaneous
  Country: US (occurrence: US)
  Receive Date: 20130503
  Receipt Date: 20130503
  Transmission Date: 20140414
  Serious: No
  Sender: FDA-Public Use
  Company Number: US-PFIZER INC-2013133283

PATIENT
  Age: 53 Year
  Sex: Male
  Weight: 136 kg

DRUGS (1)
  1. GENOTROPIN [Suspect]
     Indication: BLOOD GROWTH HORMONE ABNORMAL
     Dosage: UNK
     Route: 058
     Dates: start: 2012

REACTIONS (1)
  - Injection site pain [Unknown]
